FAERS Safety Report 9830049 (Version 2)
Quarter: 2014Q3

REPORT INFORMATION
  Report Type: Spontaneous
  Country: US (occurrence: US)
  Receive Date: 20140120
  Receipt Date: 20140812
  Transmission Date: 20150326
  Serious: Yes (Other)
  Sender: FDA-Public Use
  Company Number: US-BAYER-2014-008230

PATIENT
  Age: 22 Year
  Sex: Female

DRUGS (1)
  1. MIRENA [Suspect]
     Active Substance: LEVONORGESTREL
     Indication: CONTRACEPTION
     Dosage: 20 MCG/24HR, CONT
     Route: 015
     Dates: start: 20131115, end: 20131213

REACTIONS (5)
  - Abdominal pain lower [None]
  - Gonorrhoea [Not Recovered/Not Resolved]
  - Inflammation [None]
  - Device expulsion [Recovered/Resolved]
  - Hernia [None]

NARRATIVE: CASE EVENT DATE: 2013
